FAERS Safety Report 24893907 (Version 1)
Quarter: 2025Q1

REPORT INFORMATION
  Report Type: Spontaneous
  Country: FR (occurrence: FR)
  Receive Date: 20250128
  Receipt Date: 20250128
  Transmission Date: 20250408
  Serious: Yes (Hospitalization)
  Sender: ACCORD
  Company Number: None

PATIENT
  Age: 78 Year
  Sex: Female
  Weight: 60 kg

DRUGS (2)
  1. CARBOPLATIN [Suspect]
     Active Substance: CARBOPLATIN
     Indication: Clear cell endometrial carcinoma
     Dosage: 4 TREATMENTS OF CARBOPLATIN WITH C1 ON 21-SEP-23 AND C4 ON 22-NOV-23
     Dates: start: 20240912, end: 20241024
  2. DOSTARLIMAB [Suspect]
     Active Substance: DOSTARLIMAB
     Indication: Clear cell endometrial carcinoma
     Dosage: STRENGTH: 500 MG, 3 TREATMENTS OF DOSTARLIMAB AAP 500 MG WITH C1
     Dates: start: 20240912, end: 20241024

REACTIONS (1)
  - Otitis media acute [Recovering/Resolving]

NARRATIVE: CASE EVENT DATE: 20241111
